FAERS Safety Report 10189399 (Version 1)
Quarter: 2014Q2

REPORT INFORMATION
  Report Type: Spontaneous
  Country: FR (occurrence: FR)
  Receive Date: 20140522
  Receipt Date: 20140522
  Transmission Date: 20141212
  Serious: Yes (Hospitalization)
  Sender: FDA-Public Use
  Company Number: FR-TEVA-482124ISR

PATIENT
  Age: 79 Year
  Sex: Male

DRUGS (7)
  1. CARBIDOPA LEVODOPA TEVA [Suspect]
     Indication: PARKINSON^S DISEASE
     Route: 048
     Dates: start: 20100317, end: 20100325
  2. AMLOR [Concomitant]
  3. PLAVIX [Concomitant]
  4. CELIPROLOL [Concomitant]
  5. SEROPRAM [Concomitant]
  6. PARIET [Concomitant]
  7. ATARAX [Concomitant]

REACTIONS (3)
  - Rash macular [Recovered/Resolved]
  - Pyrexia [Recovered/Resolved]
  - Diarrhoea [Recovered/Resolved]
